FAERS Safety Report 21274825 (Version 1)
Quarter: 2022Q3

REPORT INFORMATION
  Report Type: Spontaneous
  Country: US (occurrence: US)
  Receive Date: 20220831
  Receipt Date: 20220831
  Transmission Date: 20221026
  Serious: No
  Sender: FDA-Public Use
  Company Number: US-AMERICAN REGENT INC-2021002976

PATIENT
  Age: 13 Year
  Sex: Female
  Weight: 93.424 kg

DRUGS (1)
  1. FERRIC CARBOXYMALTOSE [Suspect]
     Active Substance: FERRIC CARBOXYMALTOSE
     Indication: Product used for unknown indication
     Dosage: 750 MG IN 250ML
     Route: 042
     Dates: start: 202111, end: 202111

REACTIONS (6)
  - Dizziness [Unknown]
  - Headache [Unknown]
  - Flushing [Unknown]
  - Tachycardia [Unknown]
  - Palpitations [Unknown]
  - Product use issue [Unknown]

NARRATIVE: CASE EVENT DATE: 20211101
